FAERS Safety Report 24633836 (Version 2)
Quarter: 2024Q4

REPORT INFORMATION
  Report Type: Spontaneous
  Country: US (occurrence: US)
  Receive Date: 20241118
  Receipt Date: 20241120
  Transmission Date: 20250115
  Serious: No
  Sender: SHIONOGI
  Company Number: US-shionogi-202400000550

PATIENT
  Age: 38 Year
  Sex: Male

DRUGS (12)
  1. CEFIDEROCOL [Suspect]
     Active Substance: CEFIDEROCOL
     Indication: Acinetobacter infection
  2. CEFIDEROCOL [Suspect]
     Active Substance: CEFIDEROCOL
     Indication: Drug resistance
  3. CEFIDEROCOL [Suspect]
     Active Substance: CEFIDEROCOL
     Indication: Pneumonia
  4. CEFIDEROCOL [Suspect]
     Active Substance: CEFIDEROCOL
     Indication: Pneumonia
  5. AMPICILLIN SODIUM\SULBACTAM SODIUM [Suspect]
     Active Substance: AMPICILLIN SODIUM\SULBACTAM SODIUM
     Indication: Pneumonia
  6. AMPICILLIN SODIUM\SULBACTAM SODIUM [Suspect]
     Active Substance: AMPICILLIN SODIUM\SULBACTAM SODIUM
     Indication: Pneumonia
  7. AMPICILLIN SODIUM\SULBACTAM SODIUM [Suspect]
     Active Substance: AMPICILLIN SODIUM\SULBACTAM SODIUM
     Indication: Acinetobacter infection
  8. AMPICILLIN SODIUM\SULBACTAM SODIUM [Suspect]
     Active Substance: AMPICILLIN SODIUM\SULBACTAM SODIUM
     Indication: Drug resistance
  9. COLISTIN [Suspect]
     Active Substance: COLISTIN
     Indication: Pneumonia
     Route: 055
  10. COLISTIN [Suspect]
     Active Substance: COLISTIN
     Indication: Pneumonia
  11. COLISTIN [Suspect]
     Active Substance: COLISTIN
     Indication: Acinetobacter infection
  12. COLISTIN [Suspect]
     Active Substance: COLISTIN
     Indication: Drug resistance

REACTIONS (1)
  - Treatment failure [Unknown]
